FAERS Safety Report 8265743-0 (Version None)
Quarter: 2012Q2

REPORT INFORMATION
  Report Type: 
  Country: None (occurrence: None)
  Receive Date: 20120404
  Receipt Date: 20120329
  Transmission Date: 20120825
  Serious: Yes (Hospitalization, Disabling, Other)
  Sender: FDA-Public Use
  Company Number: 2010SP006325

PATIENT
  Age: 29 Year
  Sex: Female
  Weight: 53.978 kg

DRUGS (5)
  1. NUVARING [Suspect]
     Indication: CONTRACEPTION
     Dosage: VAG
     Route: 067
     Dates: start: 20070306, end: 20070704
  2. VENTOLIN [Concomitant]
  3. VALTREX [Concomitant]
  4. FIORICET [Concomitant]
  5. TRAMADOLOL/APAP [Concomitant]

REACTIONS (64)
  - VOCAL CORD DISORDER [None]
  - PANIC ATTACK [None]
  - COGNITIVE DISORDER [None]
  - BALANCE DISORDER [None]
  - VISUAL ACUITY REDUCED [None]
  - CONVULSION [None]
  - VOCAL CORD PARALYSIS [None]
  - IMPAIRED WORK ABILITY [None]
  - SINUS DISORDER [None]
  - BREAST TENDERNESS [None]
  - CHEST PAIN [None]
  - PYREXIA [None]
  - MIGRAINE [None]
  - ENCEPHALOMALACIA [None]
  - NAUSEA [None]
  - CEREBROVASCULAR ACCIDENT [None]
  - CHOKING [None]
  - HYPERHIDROSIS [None]
  - LARYNGEAL STENOSIS [None]
  - BRAIN INJURY [None]
  - UNRESPONSIVE TO STIMULI [None]
  - AGGRESSION [None]
  - APHASIA [None]
  - COAGULATION FACTOR VIII LEVEL INCREASED [None]
  - CONVERSION DISORDER [None]
  - MEMORY IMPAIRMENT [None]
  - ANXIETY [None]
  - MUSCULOSKELETAL DISCOMFORT [None]
  - TENDONITIS [None]
  - HEADACHE [None]
  - HEMIPARESIS [None]
  - FALL [None]
  - SPINAL OSTEOARTHRITIS [None]
  - CYST [None]
  - FIBROCYSTIC BREAST DISEASE [None]
  - BREAST MASS [None]
  - HYPERCOAGULATION [None]
  - VOMITING [None]
  - GRAND MAL CONVULSION [None]
  - GRANULOMA [None]
  - HYPOAESTHESIA [None]
  - MENTAL DISORDER [None]
  - DISTURBANCE IN ATTENTION [None]
  - CEREBRAL INFARCTION [None]
  - PARTIAL SEIZURES [None]
  - PNEUMONIA ASPIRATION [None]
  - CEREBRAL HAEMORRHAGE [None]
  - AGITATION [None]
  - TRANSVERSE SINUS THROMBOSIS [None]
  - CEREBRAL HAEMATOMA [None]
  - STRIDOR [None]
  - VISION BLURRED [None]
  - EXERCISE TOLERANCE DECREASED [None]
  - HEARING IMPAIRED [None]
  - DIZZINESS [None]
  - SOMNOLENCE [None]
  - INTERVERTEBRAL DISC SPACE NARROWING [None]
  - LOSS OF CONSCIOUSNESS [None]
  - ASTHMA [None]
  - GAIT DISTURBANCE [None]
  - ARTHRALGIA [None]
  - FATIGUE [None]
  - TOOTH IMPACTED [None]
  - SINUSITIS [None]
